FAERS Safety Report 7800879-7 (Version None)
Quarter: 2011Q4

REPORT INFORMATION
  Report Type: 
  Country: None (occurrence: None)
  Receive Date: 20111006
  Receipt Date: 20111004
  Transmission Date: 20120403
  Serious: Yes (Life-Threatening, Hospitalization, Other)
  Sender: FDA-Public Use
  Company Number: DE-MERCK-1106DEU00049

PATIENT
  Age: 49 Year
  Sex: Male
  Weight: 73 kg

DRUGS (3)
  1. SINGULAIR [Suspect]
     Indication: ASTHMA
     Route: 048
     Dates: start: 20080101, end: 20081101
  2. BECLOMETHASONE DIPROPIONATE AND FORMOTEROL FUMARATE [Concomitant]
     Indication: ASTHMA
     Route: 055
  3. SINGULAIR [Suspect]
     Route: 048
     Dates: start: 20080601, end: 20080601

REACTIONS (4)
  - TONGUE OEDEMA [None]
  - VASCULITIS [None]
  - EOSINOPHILIA [None]
  - LUNG DISORDER [None]
